FAERS Safety Report 16441254 (Version 1)
Quarter: 2019Q2

REPORT INFORMATION
  Report Type: Spontaneous
  Country: US (occurrence: US)
  Receive Date: 20190617
  Receipt Date: 20190617
  Transmission Date: 20190711
  Serious: No
  Sender: FDA-Public Use
  Company Number: US-GLAXOSMITHKLINE-US2019AMR085963

PATIENT
  Age: 70 Year
  Sex: Male

DRUGS (2)
  1. ALBUTEROL SULFATE INHALATION POWDER [Suspect]
     Active Substance: ALBUTEROL SULFATE
     Indication: COUGH
  2. ALBUTEROL SULFATE INHALATION POWDER [Suspect]
     Active Substance: ALBUTEROL SULFATE
     Indication: WHEEZING
     Dosage: UNK
     Route: 065

REACTIONS (3)
  - Wrong technique in product usage process [Unknown]
  - Product dose omission [Unknown]
  - Drug ineffective [Unknown]
